FAERS Safety Report 10154221 (Version 2)
Quarter: 2014Q2

REPORT INFORMATION
  Report Type: Spontaneous
  Country: US (occurrence: US)
  Receive Date: 20140506
  Receipt Date: 20140526
  Transmission Date: 20141212
  Serious: Yes (Other)
  Sender: FDA-Public Use
  Company Number: US-PFIZER INC-2014120481

PATIENT
  Age: 79 Year
  Sex: Female
  Weight: 85.71 kg

DRUGS (1)
  1. TOVIAZ [Suspect]
     Indication: POLLAKIURIA
     Dosage: 4 MG, ONCE
     Dates: start: 20140428, end: 20140428

REACTIONS (7)
  - Urinary retention [Recovered/Resolved]
  - Malaise [Unknown]
  - Pain [Unknown]
  - Headache [Unknown]
  - Dizziness [Unknown]
  - Gastrointestinal pain [Unknown]
  - Gallbladder pain [Unknown]
